FAERS Safety Report 26069012 (Version 1)
Quarter: 2025Q4

REPORT INFORMATION
  Report Type: Spontaneous
  Country: CN (occurrence: CN)
  Receive Date: 20251120
  Receipt Date: 20251120
  Transmission Date: 20260117
  Serious: Yes (Other)
  Sender: BAXTER
  Company Number: None

PATIENT
  Age: 45 Year
  Sex: Female
  Weight: 61 kg

DRUGS (2)
  1. CYCLOPHOSPHAMIDE [Suspect]
     Active Substance: CYCLOPHOSPHAMIDE
     Indication: Breast cancer female
     Dosage: 0.9 G, QD
     Route: 041
     Dates: start: 20250922, end: 20250922
  2. PIRARUBICIN HYDROCHLORIDE [Suspect]
     Active Substance: PIRARUBICIN HYDROCHLORIDE
     Indication: Breast cancer female
     Dosage: 70 MG, QD
     Route: 041
     Dates: start: 20250922, end: 20250922

REACTIONS (4)
  - Hyperpyrexia [Recovering/Resolving]
  - Febrile neutropenia [Recovered/Resolved]
  - Myelosuppression [Unknown]
  - Asthenia [Unknown]

NARRATIVE: CASE EVENT DATE: 20251001
